FAERS Safety Report 9672256 (Version 1)
Quarter: 2013Q4

REPORT INFORMATION
  Report Type: Spontaneous
  Country: US (occurrence: US)
  Receive Date: 20131106
  Receipt Date: 20131106
  Transmission Date: 20140711
  Serious: Yes (Hospitalization)
  Sender: FDA-Public Use
  Company Number: US-BAXTER-2013BAX043188

PATIENT
  Age: 60 Year
  Sex: Male

DRUGS (1)
  1. DIANEAL PD2 [Suspect]
     Indication: PERITONEAL DIALYSIS
     Route: 033
     Dates: start: 201106

REACTIONS (4)
  - Fall [Recovered/Resolved]
  - Limb injury [Recovered/Resolved]
  - Laceration [Recovered/Resolved]
  - Wound infection [Recovered/Resolved]
